FAERS Safety Report 5875441-6 (Version None)
Quarter: 2008Q3

REPORT INFORMATION
  Report Type: 
  Country: None (occurrence: None)
  Receive Date: 20080909
  Receipt Date: 20080808
  Transmission Date: 20090109
  Serious: No
  Sender: FDA-Public Use
  Company Number: US-BAYER-200832318NA

PATIENT
  Age: 51 Year
  Sex: Male
  Weight: 100 kg

DRUGS (1)
  1. MAGNEVIST [Suspect]
     Indication: VERTIGO
     Dosage: TOTAL DAILY DOSE: 20 ML  UNIT DOSE: 20 ML
     Route: 042
     Dates: start: 20080731, end: 20080731

REACTIONS (4)
  - FEELING ABNORMAL [None]
  - PRURITUS [None]
  - SINUS CONGESTION [None]
  - URTICARIA [None]
